FAERS Safety Report 15604475 (Version 1)
Quarter: 2018Q4

REPORT INFORMATION
  Report Type: Report from Study
  Country: MX (occurrence: MX)
  Receive Date: 20181110
  Receipt Date: 20181110
  Transmission Date: 20190205
  Serious: Yes (Hospitalization, Other)
  Sender: FDA-Public Use
  Company Number: PHHY2018MX129115

PATIENT
  Age: 33 Year
  Sex: Male
  Weight: 167 kg

DRUGS (12)
  1. REVOLADE [Suspect]
     Active Substance: ELTROMBOPAG
     Indication: PAROXYSMAL NOCTURNAL HAEMOGLOBINURIA
  2. ERYTHROPOIETIN [Concomitant]
     Active Substance: ERYTHROPOIETIN
     Indication: BONE MARROW DISORDER
     Dosage: 4000 IU, (ON MONDAYS, WEDNESDAY AND FRIDAY) IN ARM
     Route: 030
     Dates: start: 2015
  3. FOLIC ACID. [Concomitant]
     Active Substance: FOLIC ACID
     Indication: VITAMIN SUPPLEMENTATION
     Dosage: 400 UG, QD (2 MONTHS AGO)
     Route: 065
  4. FILGRASTIM [Concomitant]
     Active Substance: FILGRASTIM
     Indication: PLATELET COUNT
     Dosage: 1 DF, BIW (WEDNESDAY AND SUNDAYS)
     Route: 058
     Dates: start: 2015
  5. SANDIMMUN [Suspect]
     Active Substance: CYCLOSPORINE
     Indication: APLASTIC ANAEMIA
     Dosage: 1 DF, Q12H
     Route: 048
     Dates: start: 200903
  6. REVOLADE [Suspect]
     Active Substance: ELTROMBOPAG
     Indication: APLASTIC ANAEMIA
     Dosage: 1 DF, QD
     Route: 065
     Dates: start: 201801, end: 201807
  7. MYCOPHENOLIC ACID. [Suspect]
     Active Substance: MYCOPHENOLIC ACID
     Indication: PAROXYSMAL NOCTURNAL HAEMOGLOBINURIA
  8. SANDIMMUN [Suspect]
     Active Substance: CYCLOSPORINE
     Indication: PAROXYSMAL NOCTURNAL HAEMOGLOBINURIA
  9. MYCOPHENOLIC ACID. [Suspect]
     Active Substance: MYCOPHENOLIC ACID
     Indication: APLASTIC ANAEMIA
     Dosage: QD
     Route: 048
     Dates: start: 2015, end: 2015
  10. PREDNISONE. [Concomitant]
     Active Substance: PREDNISONE
     Indication: PAROXYSMAL NOCTURNAL HAEMOGLOBINURIA
  11. VITAMIN B COMPLEX [Concomitant]
     Active Substance: CYANOCOBALAMIN\DEXPANTHENOL\NIACINAMIDE\PYRIDOXINE HYDROCHLORIDE\RIBOFLAVIN 5^-PHOSPHATE SODIUM\THIAMINE HYDROCHLORIDE\VITAMIN B COMPLEX
     Indication: VITAMIN SUPPLEMENTATION
     Dosage: 1 DF, QD (2 MONTHS AGO)
     Route: 048
  12. PREDNISONE. [Concomitant]
     Active Substance: PREDNISONE
     Indication: APLASTIC ANAEMIA
     Dosage: 0.25 DF, QD (EVERY 24 HOURS)
     Route: 065
     Dates: start: 2009

REACTIONS (7)
  - Gastric ulcer haemorrhage [Unknown]
  - Thrombosis mesenteric vessel [Recovered/Resolved with Sequelae]
  - Product use in unapproved indication [Unknown]
  - Thrombosis [Recovered/Resolved with Sequelae]
  - Drug ineffective [Recovered/Resolved]
  - Gastric ulcer [Unknown]
  - Muscular weakness [Unknown]

NARRATIVE: CASE EVENT DATE: 201301
